FAERS Safety Report 12854853 (Version 2)
Quarter: 2016Q4

REPORT INFORMATION
  Report Type: Spontaneous
  Country: US (occurrence: US)
  Receive Date: 20161017
  Receipt Date: 20161017
  Transmission Date: 20170207
  Serious: Yes (Other)
  Sender: FDA-Public Use
  Company Number: US-BELCHER PHARMACEUTICALS, LLC-2016VTS00195

PATIENT
  Age: 71 Year
  Sex: Female
  Weight: 64.4 kg

DRUGS (8)
  1. TAZTIA XT [Concomitant]
     Active Substance: DILTIAZEM HYDROCHLORIDE
     Dosage: 240 MG, 1X/DAY
  2. METFORMIN [Concomitant]
     Active Substance: METFORMIN HYDROCHLORIDE
     Dosage: 750 MG, 1X/DAY
     Dates: start: 2013
  3. HYOSCYAMINE SULFATE. [Suspect]
     Active Substance: HYOSCYAMINE SULFATE
     Indication: IRRITABLE BOWEL SYNDROME
     Dosage: 0.125 MG, 2X/DAY
     Route: 048
     Dates: start: 20160823, end: 20160827
  4. ATENOLOL. [Concomitant]
     Active Substance: ATENOLOL
     Dosage: 25 MG, 1X/DAY
  5. VITAMIN D [Concomitant]
     Active Substance: CHOLECALCIFEROL
     Dosage: 1000 MG, 1X/DAY
  6. LOSARTAN. [Concomitant]
     Active Substance: LOSARTAN
     Dosage: 25 MG, 1X/DAY
  7. BABY ASPIRIN [Concomitant]
     Active Substance: ASPIRIN
     Dosage: 81 MG, 1X/DAY
  8. PRAVASTATIN. [Concomitant]
     Active Substance: PRAVASTATIN
     Dosage: 80 MG, 1X/DAY

REACTIONS (6)
  - Hyperhidrosis [Recovered/Resolved]
  - Dizziness [Recovered/Resolved]
  - Agitation [Recovered/Resolved]
  - Blood potassium decreased [Recovered/Resolved]
  - Electrocardiogram abnormal [None]
  - Loss of consciousness [Recovered/Resolved]

NARRATIVE: CASE EVENT DATE: 20160827
